FAERS Safety Report 18578680 (Version 5)
Quarter: 2021Q1

REPORT INFORMATION
  Report Type: Report from Study
  Country: CA (occurrence: CA)
  Receive Date: 20201204
  Receipt Date: 20210226
  Transmission Date: 20210419
  Serious: Yes (Other)
  Sender: FDA-Public Use
  Company Number: CA-AMGEN-CANSL2020172059

PATIENT
  Age: 43 Year
  Sex: Female
  Weight: 58.9 kg

DRUGS (7)
  1. KANJINTI [Suspect]
     Active Substance: TRASTUZUMAB-ANNS
     Dosage: 338 MILLIGRAM, Q3WK
     Route: 042
     Dates: start: 20201126
  2. KANJINTI [Suspect]
     Active Substance: TRASTUZUMAB-ANNS
     Dosage: 338 MILLIGRAM, Q3WK
     Route: 042
  3. KANJINTI [Suspect]
     Active Substance: TRASTUZUMAB-ANNS
     Indication: METASTASES TO CENTRAL NERVOUS SYSTEM
     Dosage: 532 2 MILLILITRE PER HOUR
     Route: 042
  4. KANJINTI [Suspect]
     Active Substance: TRASTUZUMAB-ANNS
     Indication: BREAST CANCER STAGE IV
     Dosage: 338 MILLIGRAM, Q3WK
     Route: 042
  5. KANJINTI [Suspect]
     Active Substance: TRASTUZUMAB-ANNS
     Dosage: 338 MILLIGRAM, Q3WK
     Route: 042
     Dates: start: 20210128
  6. KANJINTI [Suspect]
     Active Substance: TRASTUZUMAB-ANNS
     Dosage: 338 MILLIGRAM, Q3WK
     Route: 042
     Dates: start: 20210107
  7. TUCATINIB [Concomitant]
     Active Substance: TUCATINIB
     Dosage: 300 MILLIGRAM, BID
     Route: 048
     Dates: start: 20200925

REACTIONS (20)
  - Headache [Recovered/Resolved]
  - Blood pressure fluctuation [Unknown]
  - Pain in extremity [Recovering/Resolving]
  - Malaise [Recovering/Resolving]
  - Depression [Recovered/Resolved]
  - Vomiting [Unknown]
  - Infusion site oedema [Unknown]
  - Temperature intolerance [Unknown]
  - Infusion site pain [Unknown]
  - Anxiety [Recovered/Resolved]
  - Vein rupture [Unknown]
  - Urticaria [Recovered/Resolved]
  - Fatigue [Recovering/Resolving]
  - Arthralgia [Unknown]
  - Rash [Unknown]
  - Nausea [Recovered/Resolved]
  - Diarrhoea [Recovering/Resolving]
  - Appetite disorder [Recovered/Resolved]
  - Localised infection [Unknown]
  - Hypoaesthesia [Recovered/Resolved]

NARRATIVE: CASE EVENT DATE: 20200925
